FAERS Safety Report 6802086-3 (Version None)
Quarter: 2010Q2

REPORT INFORMATION
  Report Type: 
  Country: None (occurrence: None)
  Receive Date: 20100629
  Receipt Date: 20070920
  Transmission Date: 20101027
  Serious: No
  Sender: FDA-Public Use
  Company Number: US-PFIZER INC-2007057935

PATIENT
  Sex: Female

DRUGS (5)
  1. ALDACTONE [Suspect]
     Indication: POLYCYSTIC OVARIES
  2. GLUCOPHAGE [Concomitant]
     Indication: DIABETES MELLITUS
  3. LISINOPRIL [Concomitant]
     Indication: PROPHYLAXIS
  4. ZETIA [Concomitant]
  5. ZYRTEC [Concomitant]
     Indication: HYPERSENSITIVITY

REACTIONS (1)
  - COELIAC DISEASE [None]
